FAERS Safety Report 8050114-2 (Version None)
Quarter: 2012Q1

REPORT INFORMATION
  Report Type: 
  Country: None (occurrence: None)
  Receive Date: 20120117
  Receipt Date: 20120105
  Transmission Date: 20120608
  Serious: Yes (Hospitalization, Disabling, Other)
  Sender: FDA-Public Use
  Company Number: US-MERCK-1107USA03465

PATIENT
  Age: 57 Year
  Sex: Female

DRUGS (8)
  1. CALCIUM (UNSPECIFIED) AND VITAMIN D (UNSPECIFIED) [Concomitant]
     Indication: BLOOD CALCIUM DECREASED
     Route: 065
     Dates: start: 19990101
  2. RECLAST [Suspect]
     Indication: OSTEOPENIA
     Route: 041
     Dates: start: 20100901, end: 20110201
  3. ESOMEPRAZOLE [Concomitant]
     Route: 065
     Dates: start: 20020101
  4. VITAMIN E [Concomitant]
     Route: 065
     Dates: start: 19990101
  5. FOSAMAX PLUS D [Suspect]
     Indication: OSTEOPENIA
     Route: 048
     Dates: start: 20080101, end: 20090101
  6. FOSAMAX [Suspect]
     Indication: OSTEOPENIA
     Route: 048
     Dates: start: 20020401, end: 20071201
  7. ALENDRONATE SODIUM [Suspect]
     Indication: OSTEOPENIA
     Route: 048
     Dates: start: 20090201, end: 20100801
  8. CALCIUM (UNSPECIFIED) AND VITAMIN D (UNSPECIFIED) [Concomitant]
     Indication: VITAMIN D DEFICIENCY
     Route: 065
     Dates: start: 19990101

REACTIONS (11)
  - TIBIA FRACTURE [None]
  - FRACTURE DELAYED UNION [None]
  - OSTEOPOROSIS [None]
  - IMPAIRED HEALING [None]
  - STRESS FRACTURE [None]
  - ANXIETY [None]
  - GINGIVAL DISORDER [None]
  - MUSCLE SPASMS [None]
  - FEMUR FRACTURE [None]
  - ARTHRITIS [None]
  - OSTEOARTHRITIS [None]
